FAERS Safety Report 19821268 (Version 1)
Quarter: 2021Q3

REPORT INFORMATION
  Report Type: Spontaneous
  Country: US (occurrence: US)
  Receive Date: 20210913
  Receipt Date: 20210913
  Transmission Date: 20211014
  Serious: No
  Sender: FDA-Public Use
  Company Number: US-BAYER-2021-204153

PATIENT
  Age: 62 Year
  Sex: Female
  Weight: 93 kg

DRUGS (7)
  1. NEXIUM 1?2?3 [Concomitant]
     Active Substance: AMOXICILLIN\CLARITHROMYCIN\ESOMEPRAZOLE
  2. MIRENA [Suspect]
     Active Substance: LEVONORGESTREL
  3. PROVERA [Concomitant]
     Active Substance: MEDROXYPROGESTERONE ACETATE
  4. XANAX [Concomitant]
     Active Substance: ALPRAZOLAM
  5. SALONPAS 30 [Concomitant]
  6. PREDNISOLONE. [Concomitant]
     Active Substance: PREDNISOLONE
  7. VERELAN [Concomitant]
     Active Substance: VERAPAMIL HYDROCHLORIDE

REACTIONS (7)
  - Dyspnoea [None]
  - Intermenstrual bleeding [None]
  - Back pain [None]
  - Muscular weakness [Not Recovered/Not Resolved]
  - Arthralgia [None]
  - Fatigue [None]
  - Tenderness [None]

NARRATIVE: CASE EVENT DATE: 2003
